FAERS Safety Report 5833443-X (Version None)
Quarter: 2008Q3

REPORT INFORMATION
  Report Type: 
  Country: None (occurrence: None)
  Receive Date: 20080731
  Receipt Date: 20080715
  Transmission Date: 20090109
  Serious: Yes (Disabling)
  Sender: FDA-Public Use
  Company Number: US-1166794

PATIENT
  Sex: Female

DRUGS (1)
  1. CIPRODEX [Suspect]
     Indication: TYMPANIC MEMBRANE PERFORATION
     Dosage: (AURIICULAR (OTIC) )
     Route: 001

REACTIONS (2)
  - HYPOACUSIS [None]
  - TINNITUS [None]
